FAERS Safety Report 11593234 (Version 1)
Quarter: 2015Q4

REPORT INFORMATION
  Report Type: Spontaneous
  Country: JP (occurrence: JP)
  Receive Date: 20151005
  Receipt Date: 20151005
  Transmission Date: 20160304
  Serious: No
  Sender: FDA-Public Use
  Company Number: JP-JNJFOC-20150921214

PATIENT

DRUGS (1)
  1. CANAGLIFLOZIN [Suspect]
     Active Substance: CANAGLIFLOZIN
     Indication: TYPE 2 DIABETES MELLITUS
     Dosage: AT 25 MG, 100 MG, 200 MG OR 400 MG
     Route: 065

REACTIONS (10)
  - Diarrhoea [Unknown]
  - Urine ketone body present [Unknown]
  - Incorrect dose administered [Unknown]
  - Occult blood positive [Unknown]
  - Nasopharyngitis [Unknown]
  - Dizziness [Unknown]
  - Toothache [Unknown]
  - Urine sodium increased [Unknown]
  - Anaemia [Unknown]
  - Urine output increased [Unknown]
